FAERS Safety Report 22362784 (Version 1)
Quarter: 2023Q2

REPORT INFORMATION
  Report Type: Report from Study
  Country: GB (occurrence: GB)
  Receive Date: 20230524
  Receipt Date: 20230524
  Transmission Date: 20230721
  Serious: Yes (Hospitalization)
  Sender: FDA-Public Use
  Company Number: GB-CELLTRION INC.-2023GB010633

PATIENT

DRUGS (11)
  1. RITUXIMAB [Suspect]
     Active Substance: RITUXIMAB
     Indication: Follicular lymphoma
     Dosage: DOSE: 1, QD, 28 DAY
     Route: 042
  2. BENDAMUSTINE [Suspect]
     Active Substance: BENDAMUSTINE
     Indication: Follicular lymphoma
     Dosage: DOSE: 1, QD, DAY 1 AND DAY 2
     Route: 042
  3. ACYCLOVIR [Concomitant]
     Active Substance: ACYCLOVIR
     Dosage: 600 MG, QD (CUMULATIVE DOSE TO FIRST REACTION: 33600.0MG)
     Route: 048
     Dates: start: 20220328
  4. SULFAMETHOXAZOLE [Concomitant]
     Active Substance: SULFAMETHOXAZOLE
     Dosage: 960 MG, QD (CUMULATIVE DOSE TO FIRST REACTION: 53760.0MG)
     Route: 048
     Dates: start: 20220328
  5. TRIMETHOPRIM [Concomitant]
     Active Substance: TRIMETHOPRIM
     Dosage: 960 MG, QD (CUMULATIVE DOSE TO FIRST REACTION: 53760.0 MG)
     Route: 048
     Dates: start: 20220328
  6. NYSTATIN [Concomitant]
     Active Substance: NYSTATIN
     Indication: Oral candidiasis
     Dosage: DOSE: 4, QD, 100000 UNITS
     Route: 048
     Dates: start: 20220601
  7. TINZAPARIN [Concomitant]
     Active Substance: TINZAPARIN
     Dosage: 3.5 MG, QD (CUMULATIVE DOSE TO FIRST REACTION:31.5 MG)
     Route: 058
     Dates: start: 20220601, end: 20220606
  8. COTRIMOXAZOLE [Concomitant]
     Active Substance: SULFAMETHOXAZOLE\TRIMETHOPRIM
  9. CYCLIZINE [Concomitant]
     Active Substance: CYCLIZINE
     Dosage: 50 MG, PERSISTENT 1 DAYS
     Route: 048
     Dates: start: 20220328
  10. ONDANSETRON [Concomitant]
     Active Substance: ONDANSETRON
     Dosage: 8 MG, MULTIPLE 1 DAYS
     Route: 048
     Dates: start: 20220328
  11. SENNA [Concomitant]
     Active Substance: SENNA LEAF\SENNOSIDES\SENNOSIDES A AND B
     Dosage: 7.5 MG
     Route: 048
     Dates: start: 20220328

REACTIONS (3)
  - Nausea [Recovered/Resolved]
  - Abdominal pain [Recovered/Resolved]
  - Constipation [Recovered/Resolved]

NARRATIVE: CASE EVENT DATE: 20220523
